FAERS Safety Report 19463570 (Version 1)
Quarter: 2021Q2

REPORT INFORMATION
  Report Type: Spontaneous
  Country: CA (occurrence: CA)
  Receive Date: 20210625
  Receipt Date: 20210625
  Transmission Date: 20210717
  Serious: Yes (Life-Threatening, Other)
  Sender: FDA-Public Use
  Company Number: CA-SA-2021SA208950

PATIENT
  Age: 15 Year
  Sex: Male
  Weight: 65 kg

DRUGS (41)
  1. HYDROCORTISONE. [Concomitant]
     Active Substance: HYDROCORTISONE
     Dosage: UNK
  2. ONDANSETRON [Concomitant]
     Active Substance: ONDANSETRON
  3. POLYETHYLENE GLYCOL [MACROGOL] [Concomitant]
     Active Substance: POLYETHYLENE GLYCOLS
  4. CYCLOPHOSPHAMIDE. [Suspect]
     Active Substance: CYCLOPHOSPHAMIDE
     Indication: BONE MARROW TRANSPLANT
     Dosage: 3700 MG
     Route: 042
  5. FOSCAVIR [Concomitant]
     Active Substance: FOSCARNET SODIUM
     Dosage: 24MG
  6. NYSTATIN. [Concomitant]
     Active Substance: NYSTATIN
  7. ZINC. [Concomitant]
     Active Substance: ZINC
  8. MAGNESIUM [Concomitant]
     Active Substance: MAGNESIUM
     Dosage: UNK
  9. AMLODIPINE [Concomitant]
     Active Substance: AMLODIPINE BESYLATE
  10. ATROPINE. [Concomitant]
     Active Substance: ATROPINE
  11. EPINEPHRINE. [Concomitant]
     Active Substance: EPINEPHRINE
  12. FAMCICLOVIR. [Concomitant]
     Active Substance: FAMCICLOVIR
     Dosage: UNK
  13. MUPIROCIN. [Concomitant]
     Active Substance: MUPIROCIN
     Route: 061
  14. METHOTREXATE. [Suspect]
     Active Substance: METHOTREXATE
     Indication: BONE MARROW TRANSPLANT
     Dosage: 9 MG
     Route: 042
  15. CHOLECALCIFEROL [Concomitant]
     Active Substance: CHOLECALCIFEROL
  16. DIPHENHYDRAMINE. [Concomitant]
     Active Substance: DIPHENHYDRAMINE
  17. URSODEOXYCHOLIC ACID [Concomitant]
     Active Substance: URSODIOL
     Dosage: UNK
  18. CALCIUM + VITAMIN D3 [Concomitant]
     Active Substance: CALCIUM CARBONATE\CHOLECALCIFEROL
     Dosage: UNK
  19. CICLOSPORIN [Suspect]
     Active Substance: CYCLOSPORINE
     Indication: BONE MARROW TRANSPLANT
     Dosage: 250 MG, QD
     Route: 048
  20. AMITRIPTYLINE [Concomitant]
     Active Substance: AMITRIPTYLINE
  21. BETAMETHASONE. [Concomitant]
     Active Substance: BETAMETHASONE
  22. DIMENHYDRINATE. [Concomitant]
     Active Substance: DIMENHYDRINATE
  23. FLUCONAZOLE. [Concomitant]
     Active Substance: FLUCONAZOLE
     Dosage: UNK
  24. FUROSEMIDE. [Concomitant]
     Active Substance: FUROSEMIDE
     Dosage: UNK
  25. HEPARIN CALCIUM [Concomitant]
     Active Substance: HEPARIN CALCIUM
     Dosage: UNK
  26. MESNA. [Concomitant]
     Active Substance: MESNA
  27. METOCLOPRAMIDE. [Concomitant]
     Active Substance: METOCLOPRAMIDE
  28. POTASSIUM [Concomitant]
     Active Substance: POTASSIUM
  29. RANITIDINE. [Concomitant]
     Active Substance: RANITIDINE
  30. ANTI?THYMOCYTE GLOBULIN (RABBIT) NOS [Suspect]
     Active Substance: LAPINE T-LYMPHOCYTE IMMUNE GLOBULIN
     Indication: BONE MARROW TRANSPLANT
     Dosage: 120 MG, QD
     Route: 042
  31. METHYLPREDNISOLONE. [Concomitant]
     Active Substance: METHYLPREDNISOLONE
  32. CICLOSPORIN [Suspect]
     Active Substance: CYCLOSPORINE
     Dosage: 120 MG
     Route: 042
  33. CEFTAZIDIME. [Concomitant]
     Active Substance: CEFTAZIDIME
  34. LIDOCAINE. [Concomitant]
     Active Substance: LIDOCAINE
  35. LORAZEPAM. [Concomitant]
     Active Substance: LORAZEPAM
  36. PENTAMIDINE ISETHIONATE. [Concomitant]
     Active Substance: PENTAMIDINE ISETHIONATE
  37. CETIRIZINE [Concomitant]
     Active Substance: CETIRIZINE HYDROCHLORIDE
  38. CHLORHEXIDINE [Concomitant]
     Active Substance: CHLORHEXIDINE
  39. OLANZAPINE. [Concomitant]
     Active Substance: OLANZAPINE
  40. PREDNISONE. [Concomitant]
     Active Substance: PREDNISONE
  41. VANCOMYCIN [Concomitant]
     Active Substance: VANCOMYCIN
     Dosage: UNK

REACTIONS (3)
  - Stomatitis [Recovered/Resolved]
  - Pyrexia [Recovered/Resolved]
  - Aplasia [Recovered/Resolved]
